FAERS Safety Report 8211465-1 (Version None)
Quarter: 2012Q1

REPORT INFORMATION
  Report Type: 
  Country: None (occurrence: None)
  Receive Date: 20120228
  Receipt Date: 20110916
  Transmission Date: 20120608
  Serious: Yes (Other)
  Sender: FDA-Public Use
  Company Number: RB-32254-2011

PATIENT
  Sex: Male

DRUGS (5)
  1. OXYCODONE HCL [Suspect]
     Indication: PRODUCT USED FOR UNKNOWN INDICATION
     Dosage: TRANSPLACENTAL
     Route: 064
     Dates: start: 20110101
  2. DOCUSATE SODIUM [Concomitant]
  3. MULTI-VITAMINS [Concomitant]
  4. HEROINE (NONE) [Suspect]
     Indication: PRODUCT USED FOR UNKNOWN INDICATION
     Dosage: TRANSPLACENTAL
     Route: 064
     Dates: start: 20110101
  5. SUBUTEX [Suspect]
     Indication: DRUG DEPENDENCE
     Dosage: 4 MG TRANSPLACENTAL
     Route: 064
     Dates: start: 20110509, end: 20110825

REACTIONS (2)
  - FOETAL EXPOSURE DURING PREGNANCY [None]
  - DRUG WITHDRAWAL SYNDROME NEONATAL [None]
